FAERS Safety Report 13517623 (Version 1)
Quarter: 2017Q2

REPORT INFORMATION
  Report Type: Spontaneous
  Country: US (occurrence: US)
  Receive Date: 20170505
  Receipt Date: 20170505
  Transmission Date: 20170830
  Serious: No
  Sender: FDA-Public Use
  Company Number: None

PATIENT
  Age: 53 Year
  Sex: Male
  Weight: 68.1 kg

DRUGS (6)
  1. POTASSIUM [Concomitant]
     Active Substance: POTASSIUM
  2. CLOZAPINE NOVARTIS [Suspect]
     Active Substance: CLOZAPINE
     Indication: BIPOLAR DISORDER
     Dosage: 8 PILLS BEDTIME MOUTH
     Route: 048
     Dates: start: 19970101, end: 20140101
  3. OLANZAPINE. [Concomitant]
     Active Substance: OLANZAPINE
  4. OMEPRAZOLE. [Concomitant]
     Active Substance: OMEPRAZOLE
  5. LITHIUM CARBONATE. [Concomitant]
     Active Substance: LITHIUM CARBONATE
  6. FUROSEMIDE. [Concomitant]
     Active Substance: FUROSEMIDE

REACTIONS (1)
  - Suffocation feeling [None]

NARRATIVE: CASE EVENT DATE: 20121101
